FAERS Safety Report 22121320 (Version 3)
Quarter: 2023Q2

REPORT INFORMATION
  Report Type: Spontaneous
  Country: US (occurrence: US)
  Receive Date: 20230321
  Receipt Date: 20230411
  Transmission Date: 20230721
  Serious: Yes (Death, Other)
  Sender: FDA-Public Use
  Company Number: US-INCYTE CORPORATION-2023IN002820

PATIENT

DRUGS (1)
  1. OPZELURA [Suspect]
     Active Substance: RUXOLITINIB PHOSPHATE
     Indication: Dermatitis atopic
     Dosage: APPLY THIN LAYER TWICE DAILY TO ITCHY AREAS
     Route: 061
     Dates: start: 20220318

REACTIONS (1)
  - Death [Fatal]

NARRATIVE: CASE EVENT DATE: 20220503
